FAERS Safety Report 9094362 (Version 1)
Quarter: 2013Q1

REPORT INFORMATION
  Report Type: Spontaneous
  Country: US (occurrence: None)
  Receive Date: 20130214
  Receipt Date: 20130214
  Transmission Date: 20140127
  Serious: Yes (Hospitalization)
  Sender: FDA-Public Use
  Company Number: None

PATIENT
  Age: 64 Year
  Sex: Male
  Weight: 131.7 kg

DRUGS (2)
  1. LOSARTAN [Suspect]
     Indication: HYPERTENSION
     Dosage: 100 MG  EVERY DAY PO
     Route: 048
     Dates: start: 20080328, end: 20130202
  2. LOSARTAN [Suspect]
     Indication: DIABETES MELLITUS
     Dosage: 100 MG  EVERY DAY PO
     Route: 048
     Dates: start: 20080328, end: 20130202

REACTIONS (1)
  - Renal failure acute [None]
